FAERS Safety Report 13939430 (Version 1)
Quarter: 2017Q3

REPORT INFORMATION
  Report Type: Report from Study
  Country: US (occurrence: US)
  Receive Date: 20170906
  Receipt Date: 20170906
  Transmission Date: 20171127
  Serious: Yes (Other)
  Sender: FDA-Public Use
  Company Number: US-ROCHE-1989796

PATIENT

DRUGS (4)
  1. ALTEPLASE. [Suspect]
     Active Substance: ALTEPLASE
     Indication: ACUTE MYOCARDIAL INFARCTION
     Dosage: 0.75 MG/KG BODY WEIGHT OVER THE FIRST HOUR WITH 10% GIVEN AS A BOLUS, AND 0.25 MG/KG PER H OVER THE
     Route: 042
  2. LIDOCAINE. [Concomitant]
     Active Substance: LIDOCAINE
     Dosage: (1 MG/KG BOLUS AND A 2 TO 4 MG/MIN INFUSION) FOR THE FIRST 24 HOURS
     Route: 042
  3. HEPARIN [Suspect]
     Active Substance: HEPARIN SODIUM
     Dosage: 800 TO 1,000 U/H
     Route: 042
  4. HEPARIN [Suspect]
     Active Substance: HEPARIN SODIUM
     Indication: ACUTE MYOCARDIAL INFARCTION
     Dosage: 5000 UNITS
     Route: 042

REACTIONS (1)
  - Haemorrhage intracranial [Unknown]
